FAERS Safety Report 8245552-9 (Version None)
Quarter: 2012Q1

REPORT INFORMATION
  Report Type: 
  Country: None (occurrence: None)
  Receive Date: 20120329
  Receipt Date: 20120323
  Transmission Date: 20120608
  Serious: Yes (Other)
  Sender: FDA-Public Use
  Company Number: DE-ASTRAZENECA-2012SE19971

PATIENT

DRUGS (1)
  1. SEROQUEL [Suspect]
     Route: 048
     Dates: start: 20120101

REACTIONS (1)
  - ILEUS [None]
